FAERS Safety Report 25031326 (Version 1)
Quarter: 2025Q1

REPORT INFORMATION
  Report Type: Spontaneous
  Country: US (occurrence: None)
  Receive Date: 20250228
  Receipt Date: 20250228
  Transmission Date: 20250408
  Serious: No
  Sender: FDA-CTU
  Company Number: None

PATIENT
  Age: 87 Year
  Sex: Female

DRUGS (1)
  1. CEFTRIAXONE [Suspect]
     Active Substance: CEFTRIAXONE
     Indication: Localised infection

REACTIONS (3)
  - Anaphylactic reaction [None]
  - Drug hypersensitivity [None]
  - Intracardiac pressure increased [None]

NARRATIVE: CASE EVENT DATE: 20240323
